FAERS Safety Report 8118910-0 (Version None)
Quarter: 2012Q1

REPORT INFORMATION
  Report Type: 
  Country: None (occurrence: None)
  Receive Date: 20120207
  Receipt Date: 20120203
  Transmission Date: 20120608
  Serious: No
  Sender: FDA-Public Use
  Company Number: US-PFIZER INC-2012004992

PATIENT
  Age: 60 Year
  Sex: Male
  Weight: 68.027 kg

DRUGS (2)
  1. PRILOSEC [Concomitant]
     Indication: GASTROOESOPHAGEAL REFLUX DISEASE
     Dosage: UNK, AS NEEDED
     Route: 048
  2. LIPITOR [Suspect]
     Indication: BLOOD CHOLESTEROL ABNORMAL
     Dosage: 20 MG, DAILY
     Route: 048
     Dates: start: 20050101, end: 20111201

REACTIONS (8)
  - MALAISE [None]
  - MUSCULOSKELETAL STIFFNESS [None]
  - DRUG PRESCRIBING ERROR [None]
  - JOINT STIFFNESS [None]
  - INFLUENZA [None]
  - MYALGIA [None]
  - ASTHENIA [None]
  - ARTHRALGIA [None]
